FAERS Safety Report 8947611 (Version 1)
Quarter: 2012Q4

REPORT INFORMATION
  Report Type: 
  Country: GB (occurrence: GB)
  Receive Date: 20121204
  Receipt Date: 20121204
  Transmission Date: 20130627
  Serious: Yes (Death, Hospitalization)
  Sender: FDA-Public Use
  Company Number: GB-GENZYME-FABR-1002878

PATIENT
  Sex: Male

DRUGS (1)
  1. FABRAZYME [Suspect]
     Indication: FABRY^S DISEASE
     Dosage: 80 mg, q2w
     Route: 042

REACTIONS (3)
  - Death [Fatal]
  - Cardiac failure [Fatal]
  - Arrhythmia [Fatal]
